FAERS Safety Report 4628372-3 (Version None)
Quarter: 2005Q2

REPORT INFORMATION
  Report Type: 
  Country: None (occurrence: None)
  Receive Date: 20050401
  Receipt Date: 20050316
  Transmission Date: 20051028
  Serious: Yes (Other)
  Sender: FDA-Public Use
  Company Number: IMP_0840_2005

PATIENT
  Age: 43 Year
  Sex: Female
  Weight: 53.0709 kg

DRUGS (4)
  1. BUPROPRION HCL [Suspect]
     Indication: ANXIETY
     Dosage: 150 MG QDAY PO
     Route: 048
     Dates: start: 20041201
  2. ATENOLOL [Concomitant]
  3. EZETIMIBE [Concomitant]
  4. NEXIUM [Concomitant]

REACTIONS (18)
  - ABDOMINAL PAIN UPPER [None]
  - ALOPECIA [None]
  - BACK PAIN [None]
  - CHEST PAIN [None]
  - CONSTIPATION [None]
  - DECREASED ACTIVITY [None]
  - EATING DISORDER [None]
  - FEELING ABNORMAL [None]
  - GASTROOESOPHAGEAL REFLUX DISEASE [None]
  - HEPATIC STEATOSIS [None]
  - HYPERHIDROSIS [None]
  - HYPOAESTHESIA [None]
  - MICTURITION DISORDER [None]
  - NAUSEA [None]
  - PALPITATIONS [None]
  - PHARMACEUTICAL PRODUCT COMPLAINT [None]
  - SKIN EXFOLIATION [None]
  - WEIGHT DECREASED [None]
